FAERS Safety Report 4355226-2 (Version None)
Quarter: 2004Q2

REPORT INFORMATION
  Report Type: 
  Country: None (occurrence: None)
  Receive Date: 20040504
  Receipt Date: 20040422
  Transmission Date: 20050107
  Serious: Yes (Other)
  Sender: FDA-Public Use
  Company Number: DE-SHR-04-023941

PATIENT
  Age: 66 Year
  Sex: Male
  Weight: 72.2 kg

DRUGS (15)
  1. MAGNEVIST [Suspect]
     Indication: NUCLEAR MAGNETIC RESONANCE IMAGING
     Dosage: 1 DOSE, INTRAVENOUS
     Route: 042
     Dates: start: 20040304, end: 20040304
  2. LEVOTHYROXINE SODIUM [Concomitant]
  3. NITRENDEPAT [Concomitant]
  4. CALCIUM CARBONATE [Concomitant]
  5. NITROGLYCERIN [Concomitant]
  6. BONDIOL (ALFACALCIDOL) [Concomitant]
  7. METOPROLOL - SLOW RELEASE [Concomitant]
  8. VESDIL /GFR/(RAMIPRIL) [Concomitant]
  9. LONOLOX (MINOXIDIL) [Concomitant]
  10. ACETYLSALICYLIC ACID SRT [Concomitant]
  11. DOXY-PUREN [Concomitant]
  12. MOXONIDINE (MOXONIDINE) [Concomitant]
  13. ISCOVER /GFR (CLOPIDOGREL SULFATE) [Concomitant]
  14. FERRLECIT /GFR/ (FERRIC SODIUM GLUCONATE COMPLEX) [Concomitant]
  15. NEORECORMON (EPOETIN BETA) [Concomitant]

REACTIONS (3)
  - CHILLS [None]
  - PLEURISY [None]
  - PNEUMONITIS [None]
